FAERS Safety Report 10017989 (Version 2)
Quarter: 2014Q2

REPORT INFORMATION
  Report Type: Report from Study
  Country: CA (occurrence: CA)
  Receive Date: 20140318
  Receipt Date: 20140620
  Transmission Date: 20141212
  Serious: Yes (Hospitalization, Other)
  Sender: FDA-Public Use
  Company Number: CA-ABBVIE-14P-028-1212522-00

PATIENT
  Sex: Female

DRUGS (2)
  1. HUMIRA [Suspect]
     Indication: CROHN^S DISEASE
     Route: 058
     Dates: start: 20130225, end: 201402
  2. HUMIRA [Suspect]
     Route: 058
     Dates: start: 201402

REACTIONS (2)
  - Crohn^s disease [Unknown]
  - Drug ineffective [Not Recovered/Not Resolved]
